FAERS Safety Report 7318968-2 (Version None)
Quarter: 2011Q1

REPORT INFORMATION
  Report Type: 
  Country: None (occurrence: None)
  Receive Date: 20110228
  Receipt Date: 20110215
  Transmission Date: 20110831
  Serious: Yes (Other)
  Sender: FDA-Public Use
  Company Number: KR-ELI_LILLY_AND_COMPANY-KR201102004452

PATIENT
  Age: 30 Year
  Sex: Male

DRUGS (8)
  1. LITHIUM [Concomitant]
     Dosage: UNK, UNK
     Dates: start: 20070101
  2. LITHIUM [Concomitant]
     Dosage: 1200 MG, DAILY (1/D)
  3. VALPROATE SODIUM [Concomitant]
     Dosage: 1500 MG, DAILY (1/D)
     Dates: start: 20060701, end: 20061028
  4. ZYPREXA [Suspect]
     Dosage: 20 MG, UNK
     Dates: start: 20070101
  5. RISPERIDONE [Concomitant]
     Dosage: 4 MG, DAILY (1/D)
     Dates: start: 20060701, end: 20060926
  6. CHLORPROMAZINE HYDROCHLORIDE [Concomitant]
     Dosage: 300 MG, DAILY (1/D)
     Dates: start: 20060701, end: 20061028
  7. ZYPREXA [Suspect]
     Indication: BIPOLAR I DISORDER
     Dosage: 15 MG, DAILY (1/D)
     Dates: start: 20060926, end: 20061028
  8. VALPROATE SODIUM [Concomitant]
     Dosage: 1500 MG, DAILY (1/D)
     Dates: start: 20070101, end: 20070101

REACTIONS (3)
  - NEUTROPENIA [None]
  - LEUKOPENIA [None]
  - DRUG INTERACTION [None]
